FAERS Safety Report 24972481 (Version 1)
Quarter: 2025Q1

REPORT INFORMATION
  Report Type: Report from Study
  Country: US (occurrence: None)
  Receive Date: 20250215
  Receipt Date: 20250215
  Transmission Date: 20250409
  Serious: No
  Sender: ALEXION PHARMACEUTICALS
  Company Number: US-AstraZeneca-2014SE01296

PATIENT
  Age: 62 Year
  Weight: 77.111 kg

DRUGS (2)
  1. NEXIUM [Suspect]
     Active Substance: ESOMEPRAZOLE MAGNESIUM
     Indication: Gastrooesophageal reflux disease
  2. LIALDA [Concomitant]
     Active Substance: MESALAMINE
     Indication: Gastrointestinal disorder

REACTIONS (2)
  - Hypoacusis [Unknown]
  - Memory impairment [Unknown]
